FAERS Safety Report 16310868 (Version 1)
Quarter: 2019Q2

REPORT INFORMATION
  Report Type: Report from Study
  Country: KR (occurrence: KR)
  Receive Date: 20190514
  Receipt Date: 20190514
  Transmission Date: 20190711
  Serious: Yes (Death, Other)
  Sender: FDA-Public Use
  Company Number: KR-SA-2019SA131378

PATIENT
  Age: 67 Year
  Sex: Female

DRUGS (4)
  1. TEGAFUR [Suspect]
     Active Substance: TEGAFUR
     Indication: ADENOCARCINOMA GASTRIC
     Dosage: 35 MG/M2, BID ON DAYS 1 TO 14 OF EACH CYCLE
     Route: 048
  2. GIMERACIL [Suspect]
     Active Substance: GIMERACIL
     Indication: ADENOCARCINOMA GASTRIC
     Dosage: 35 MG/M2, BID ON DAYS 1 TO 14 OF EACH CYCLE
  3. DOCETAXEL. [Suspect]
     Active Substance: DOCETAXEL
     Indication: ADENOCARCINOMA GASTRIC
     Dosage: 35 MG/M2, QCY DAYS 1 AND 8 OF EACH CYCLE
     Route: 042
  4. OTERACIL [Suspect]
     Active Substance: OTERACIL
     Indication: ADENOCARCINOMA GASTRIC
     Dosage: 35 MG/M2, BID ON DAYS 1 TO 14 OF EACH CYCLE

REACTIONS (2)
  - Dyspnoea [Unknown]
  - Embolism [Fatal]
